FAERS Safety Report 12952723 (Version 1)
Quarter: 2016Q4

REPORT INFORMATION
  Report Type: Spontaneous
  Country: US (occurrence: US)
  Receive Date: 20161117
  Receipt Date: 20161117
  Transmission Date: 20170207
  Serious: No
  Sender: FDA-Public Use
  Company Number: US-SA-2016SA165433

PATIENT
  Age: 55 Year
  Sex: Male

DRUGS (2)
  1. SOLOSTAR [Concomitant]
     Active Substance: DEVICE
     Dates: start: 201603
  2. TOUJEO [Suspect]
     Active Substance: INSULIN GLARGINE
     Indication: TYPE 2 DIABETES MELLITUS
     Dosage: DOSE: STARTED OUT ON 20 UNITS OF TOUJEO A DAY, SOMETIMES 22 OR AS HIGH AS 25 UNITS
     Route: 065
     Dates: start: 201603

REACTIONS (5)
  - Injection site pain [Unknown]
  - Abdominal pain upper [Unknown]
  - Pruritus [Unknown]
  - Pain [Unknown]
  - Blood glucose increased [Unknown]
